FAERS Safety Report 6060881-5 (Version None)
Quarter: 2009Q1

REPORT INFORMATION
  Report Type: 
  Country: None (occurrence: None)
  Receive Date: 20090130
  Receipt Date: 20090130
  Transmission Date: 20090719
  Serious: No
  Sender: FDA-Public Use
  Company Number: None

PATIENT
  Age: 29 Year
  Sex: Male
  Weight: 79.3795 kg

DRUGS (4)
  1. SINGULAIR [Suspect]
     Indication: SEASONAL ALLERGY
     Dosage: 10 MG QD PO
     Route: 048
     Dates: end: 20020601
  2. MULTI-VITAMIN [Concomitant]
  3. CLARITIN [Concomitant]
  4. SUDAFED 12 HOUR [Concomitant]

REACTIONS (1)
  - TOOTH DISCOLOURATION [None]
